FAERS Safety Report 14142634 (Version 1)
Quarter: 2017Q4

REPORT INFORMATION
  Report Type: Spontaneous
  Country: BR (occurrence: BR)
  Receive Date: 20171030
  Receipt Date: 20171030
  Transmission Date: 20180321
  Serious: Yes (Hospitalization, Other)
  Sender: FDA-Public Use
  Company Number: BR-ALEXION-A201711228

PATIENT
  Sex: Male

DRUGS (2)
  1. SOLIRIS [Suspect]
     Active Substance: ECULIZUMAB
     Indication: PAROXYSMAL NOCTURNAL HAEMOGLOBINURIA
     Dosage: 600 MG, UNK
     Route: 042
     Dates: start: 20140115, end: 20140205
  2. SOLIRIS [Suspect]
     Active Substance: ECULIZUMAB
     Dosage: 900 MG, UNK
     Route: 042
     Dates: start: 20140213

REACTIONS (9)
  - Haematuria [Recovered/Resolved]
  - Haemoglobinuria [Unknown]
  - Blood lactate dehydrogenase abnormal [Unknown]
  - Anaemia [Unknown]
  - Rash [Recovered/Resolved]
  - Haemolysis [Recovered/Resolved]
  - Inappropriate schedule of drug administration [Unknown]
  - Asthenia [Recovered/Resolved]
  - Malaise [Recovered/Resolved]
